FAERS Safety Report 5738379-0 (Version None)
Quarter: 2008Q2

REPORT INFORMATION
  Report Type: 
  Country: None (occurrence: None)
  Receive Date: 20080513
  Receipt Date: 20080505
  Transmission Date: 20081010
  Serious: Yes (Death)
  Sender: FDA-Public Use
  Company Number: 2008011661

PATIENT
  Age: 43 Year
  Sex: Female
  Weight: 56.6996 kg

DRUGS (2)
  1. BENADRYL [Suspect]
     Dosage: UNSPECIFIED
     Dates: end: 20080221
  2. DULOXETINE (DULOXETINE) [Suspect]
     Indication: DEPRESSION
     Dosage: UNSPECIFIED
     Dates: end: 20080221

REACTIONS (1)
  - ROAD TRAFFIC ACCIDENT [None]
